FAERS Safety Report 5024736-7 (Version None)
Quarter: 2006Q2

REPORT INFORMATION
  Report Type: 
  Country: None (occurrence: None)
  Receive Date: 20060427
  Receipt Date: 20060222
  Transmission Date: 20061013
  Serious: Yes (Other)
  Sender: FDA-Public Use
  Company Number: 2006027804

PATIENT
  Sex: Female

DRUGS (3)
  1. AZITHROMYCIN [Suspect]
     Indication: ILL-DEFINED DISORDER
     Dosage: 500 MG (250 MG, QD INTERVAL: EVERY DAY)
     Dates: start: 20060101, end: 20060101
  2. ASPIRIN [Concomitant]
  3. DILTIAZEM [Concomitant]

REACTIONS (2)
  - HYPERHIDROSIS [None]
  - MALAISE [None]
